FAERS Safety Report 26200578 (Version 2)
Quarter: 2025Q4

REPORT INFORMATION
  Report Type: Spontaneous
  Country: US (occurrence: US)
  Receive Date: 20251225
  Receipt Date: 20251225
  Transmission Date: 20260118
  Serious: Yes (Hospitalization, Other)
  Sender: IPSEN BIOPHARMACEUTICALS, INC.
  Company Number: US-IPSEN Group, Research and Development-2025-21787

PATIENT
  Sex: Female

DRUGS (13)
  1. IQIRVO [Suspect]
     Active Substance: ELAFIBRANOR
     Indication: Primary biliary cholangitis
     Route: 048
  2. MYLICON INFANTS GAS RELIE [Concomitant]
  3. ZOFRAN [Concomitant]
     Active Substance: ONDANSETRON HYDROCHLORIDE
  4. LIPITOR [Concomitant]
     Active Substance: ATORVASTATIN CALCIUM
  5. URSODIOL [Concomitant]
     Active Substance: URSODIOL
  6. RESTASIS [Concomitant]
     Active Substance: CYCLOSPORINE
  7. CARBOXYMETHYLCELLULOSE SO [Concomitant]
  8. PREDNISOLONE SODIUM PHOSP [Concomitant]
  9. OCALIVA [Concomitant]
     Active Substance: OBETICHOLIC ACID
  10. GABAPENTIN [Concomitant]
     Active Substance: GABAPENTIN
  11. FOSAMAX [Concomitant]
     Active Substance: ALENDRONATE SODIUM
  12. IMODIUM A-D [Concomitant]
     Active Substance: LOPERAMIDE HYDROCHLORIDE
  13. FLUOROMETHOLONE [Concomitant]
     Active Substance: FLUOROMETHOLONE

REACTIONS (2)
  - Hepatic cirrhosis [Unknown]
  - Product dose omission issue [Unknown]
